FAERS Safety Report 21504465 (Version 2)
Quarter: 2022Q4

REPORT INFORMATION
  Report Type: Spontaneous
  Country: DE (occurrence: DE)
  Receive Date: 20221025
  Receipt Date: 20221128
  Transmission Date: 20230113
  Serious: No
  Sender: FDA-Public Use
  Company Number: DE-BAYER-2022A143547

PATIENT
  Age: 64 Year
  Sex: Female
  Weight: 50 kg

DRUGS (9)
  1. GLUCOBAY [Interacting]
     Active Substance: ACARBOSE
     Indication: Type 2 diabetes mellitus
     Dosage: 50+75+50MG, TID
     Route: 048
  2. METFORMIN HYDROCHLORIDE [Suspect]
     Active Substance: METFORMIN HYDROCHLORIDE
     Indication: Type 2 diabetes mellitus
     Dosage: 425 MG, BID, 1/2-0-1/2
     Route: 048
     Dates: start: 20211116
  3. METFORMIN HYDROCHLORIDE [Suspect]
     Active Substance: METFORMIN HYDROCHLORIDE
     Indication: Type 2 diabetes mellitus
     Dosage: 250 MG, BID, 1/2-0-1/2
     Route: 048
     Dates: start: 20211116
  4. METFORMIN HYDROCHLORIDE [Suspect]
     Active Substance: METFORMIN HYDROCHLORIDE
     Indication: Type 2 diabetes mellitus
     Dosage: 500MG RETARD
     Route: 048
     Dates: start: 20211116
  5. METFORMIN HYDROCHLORIDE [Interacting]
     Active Substance: METFORMIN HYDROCHLORIDE
     Indication: Type 2 diabetes mellitus
     Dosage: TID: 200-200-100MG
     Route: 048
     Dates: start: 202203
  6. LIOTHYRONINE SODIUM [Concomitant]
     Active Substance: LIOTHYRONINE SODIUM
     Indication: Thyroid hormone replacement therapy
     Dosage: DAILY DOSE 3.55 ?G
     Route: 048
  7. LEVOTHYROXINE [Concomitant]
     Active Substance: LEVOTHYROXINE
     Indication: Thyroid hormone replacement therapy
     Dosage: DAILY DOSE 80 ?G
     Route: 048
  8. FERROUS GLUCONATE [Concomitant]
     Active Substance: FERROUS GLUCONATE
     Dosage: 50 MG, QD
  9. ASPIRIN [Concomitant]
     Active Substance: ASPIRIN

REACTIONS (11)
  - Diarrhoea [None]
  - Pain in extremity [None]
  - Hypoaesthesia [None]
  - Head discomfort [None]
  - Dizziness [None]
  - Paraesthesia [None]
  - Headache [None]
  - Hyperhidrosis [None]
  - Abdominal pain [None]
  - Vision blurred [None]
  - Malaise [None]
